FAERS Safety Report 10284425 (Version 2)
Quarter: 2014Q3

REPORT INFORMATION
  Report Type: Spontaneous
  Country: DE (occurrence: DE)
  Receive Date: 20140708
  Receipt Date: 20140708
  Transmission Date: 20150326
  Serious: Yes (Other)
  Sender: FDA-Public Use
  Company Number: DE-TEVA-486444GER

PATIENT
  Age: 72 Year
  Sex: Male
  Weight: 77 kg

DRUGS (4)
  1. CIPROFLOXACIN-RATIOPHARM 500 MG FILMT ABLETTEN [Suspect]
     Active Substance: CIPROFLOXACIN HYDROCHLORIDE
     Indication: INFECTION
  2. ASPIRIN. [Concomitant]
     Active Substance: ASPIRIN
     Indication: PYREXIA
     Dosage: 500 MILLIGRAM DAILY;
     Route: 048
     Dates: start: 20140321, end: 20140321
  3. CIPROFLOXACIN-RATIOPHARM 500 MG FILMTABLETTEN [Suspect]
     Active Substance: CIPROFLOXACIN HYDROCHLORIDE
     Indication: CHILLS
     Dosage: 1000 MILLIGRAM DAILY;
     Route: 048
     Dates: start: 20140321, end: 20140326
  4. PARACETAMOL [Concomitant]
     Active Substance: ACETAMINOPHEN
     Indication: PYREXIA
     Dosage: 500 MILLIGRAM DAILY;
     Route: 048
     Dates: start: 20140321, end: 20140321

REACTIONS (16)
  - Disturbance in attention [Recovered/Resolved]
  - Body mass index decreased [Recovered/Resolved]
  - C-reactive protein increased [None]
  - Apathy [Recovered/Resolved]
  - Fatigue [Recovered/Resolved]
  - Alanine aminotransferase increased [None]
  - Gamma-glutamyltransferase increased [None]
  - Weight decreased [Recovered/Resolved]
  - Hepatotoxicity [Recovered/Resolved]
  - Blood alkaline phosphatase increased [None]
  - Decreased appetite [Recovered/Resolved]
  - Abnormal faeces [Recovered/Resolved]
  - Liver function test [Recovered/Resolved]
  - Aspartate aminotransferase increased [None]
  - Asthenia [Recovered/Resolved]
  - Chromaturia [Recovered/Resolved]

NARRATIVE: CASE EVENT DATE: 20140326
